FAERS Safety Report 18259064 (Version 1)
Quarter: 2020Q3

REPORT INFORMATION
  Report Type: Spontaneous
  Country: CN (occurrence: CN)
  Receive Date: 20200911
  Receipt Date: 20200911
  Transmission Date: 20201103
  Serious: Yes (Hospitalization)
  Sender: FDA-Public Use
  Company Number: CN-BAYER-2020-191463

PATIENT
  Age: 68 Year
  Sex: Male
  Weight: 70 kg

DRUGS (1)
  1. GLUCOBAY [Suspect]
     Active Substance: ACARBOSE
     Indication: TYPE 2 DIABETES MELLITUS
     Dosage: 50 MG, TID
     Route: 048
     Dates: start: 20200822, end: 20200824

REACTIONS (6)
  - Cough [None]
  - Productive cough [None]
  - Pyrexia [None]
  - Pneumonia [None]
  - Diabetes mellitus inadequate control [None]
  - Flatulence [Recovered/Resolved]

NARRATIVE: CASE EVENT DATE: 20200822
